FAERS Safety Report 9911268 (Version 1)
Quarter: 2014Q1

REPORT INFORMATION
  Report Type: Spontaneous
  Country: US (occurrence: US)
  Receive Date: 20140219
  Receipt Date: 20140219
  Transmission Date: 20141002
  Serious: Yes (Other)
  Sender: FDA-Public Use
  Company Number: US-PFIZER INC-2014043084

PATIENT
  Age: 27 Year
  Sex: Male
  Weight: 54.42 kg

DRUGS (3)
  1. REVATIO [Suspect]
     Indication: PULMONARY HYPERTENSION
     Dosage: 20 MG, 3X/DAY
     Dates: start: 201003
  2. DIGOXIN [Concomitant]
     Indication: HEART DISEASE CONGENITAL
     Dosage: 0.125 MG, DAILY
  3. KEPPRA [Concomitant]
     Indication: CONVULSION
     Dosage: 750 MG, 2X/DAY

REACTIONS (1)
  - Intracranial aneurysm [Unknown]
